FAERS Safety Report 11422253 (Version 1)
Quarter: 2015Q3

REPORT INFORMATION
  Report Type: Not Available
  Country: US (occurrence: US)
  Receive Date: 20150827
  Receipt Date: 20150827
  Transmission Date: 20151125
  Serious: No
  Sender: FDA-Public Use
  Company Number: US-LUPIN PHARMACEUTICALS INC.-E2B_00002830

PATIENT
  Sex: Female
  Weight: 53.57 kg

DRUGS (1)
  1. AMLODIPINE BESYLATE TABLETS 10 MG [Suspect]
     Active Substance: AMLODIPINE BESYLATE
     Indication: BLOOD PRESSURE MEASUREMENT

REACTIONS (1)
  - Peripheral swelling [Recovered/Resolved]
